FAERS Safety Report 25427797 (Version 2)
Quarter: 2025Q2

REPORT INFORMATION
  Report Type: Spontaneous
  Country: AU (occurrence: AU)
  Receive Date: 20250612
  Receipt Date: 20250617
  Transmission Date: 20250717
  Serious: Yes (Hospitalization, Other)
  Sender: MYLAN
  Company Number: AU-MYLANLABS-2025M1049141

PATIENT
  Sex: Male
  Weight: 83 kg

DRUGS (40)
  1. CLOZARIL [Suspect]
     Active Substance: CLOZAPINE
     Indication: Schizophrenia
  2. CLOZARIL [Suspect]
     Active Substance: CLOZAPINE
  3. CLOZARIL [Suspect]
     Active Substance: CLOZAPINE
     Route: 065
  4. CLOZARIL [Suspect]
     Active Substance: CLOZAPINE
     Route: 065
  5. CLOZARIL [Suspect]
     Active Substance: CLOZAPINE
  6. CLOZARIL [Suspect]
     Active Substance: CLOZAPINE
  7. CLOZARIL [Suspect]
     Active Substance: CLOZAPINE
     Route: 065
  8. CLOZARIL [Suspect]
     Active Substance: CLOZAPINE
     Route: 065
  9. CLOZARIL [Suspect]
     Active Substance: CLOZAPINE
  10. CLOZARIL [Suspect]
     Active Substance: CLOZAPINE
  11. CLOZARIL [Suspect]
     Active Substance: CLOZAPINE
     Route: 065
  12. CLOZARIL [Suspect]
     Active Substance: CLOZAPINE
     Route: 065
  13. CLOZARIL [Suspect]
     Active Substance: CLOZAPINE
  14. CLOZARIL [Suspect]
     Active Substance: CLOZAPINE
  15. CLOZARIL [Suspect]
     Active Substance: CLOZAPINE
     Route: 048
  16. CLOZARIL [Suspect]
     Active Substance: CLOZAPINE
     Route: 048
  17. CLOZARIL [Suspect]
     Active Substance: CLOZAPINE
  18. CLOZARIL [Suspect]
     Active Substance: CLOZAPINE
     Route: 065
  19. CLOZARIL [Suspect]
     Active Substance: CLOZAPINE
  20. CLOZARIL [Suspect]
     Active Substance: CLOZAPINE
     Route: 065
  21. HALOPERIDOL [Concomitant]
     Active Substance: HALOPERIDOL
  22. HALOPERIDOL [Concomitant]
     Active Substance: HALOPERIDOL
     Route: 065
  23. HALOPERIDOL [Concomitant]
     Active Substance: HALOPERIDOL
     Route: 065
  24. HALOPERIDOL [Concomitant]
     Active Substance: HALOPERIDOL
  25. VALPROATE SODIUM [Concomitant]
     Active Substance: VALPROATE SODIUM
  26. VALPROATE SODIUM [Concomitant]
     Active Substance: VALPROATE SODIUM
     Route: 065
  27. VALPROATE SODIUM [Concomitant]
     Active Substance: VALPROATE SODIUM
     Route: 065
  28. VALPROATE SODIUM [Concomitant]
     Active Substance: VALPROATE SODIUM
  29. SERTRALINE [Concomitant]
     Active Substance: SERTRALINE HYDROCHLORIDE
  30. SERTRALINE [Concomitant]
     Active Substance: SERTRALINE HYDROCHLORIDE
     Route: 065
  31. SERTRALINE [Concomitant]
     Active Substance: SERTRALINE HYDROCHLORIDE
     Route: 065
  32. SERTRALINE [Concomitant]
     Active Substance: SERTRALINE HYDROCHLORIDE
  33. BISOPROLOL [Concomitant]
     Active Substance: BISOPROLOL
     Dosage: 10 MILLIGRAM, QD (DAILY)
  34. BISOPROLOL [Concomitant]
     Active Substance: BISOPROLOL
     Dosage: 10 MILLIGRAM, QD (DAILY)
     Route: 065
  35. BISOPROLOL [Concomitant]
     Active Substance: BISOPROLOL
     Dosage: 10 MILLIGRAM, QD (DAILY)
     Route: 065
  36. BISOPROLOL [Concomitant]
     Active Substance: BISOPROLOL
     Dosage: 10 MILLIGRAM, QD (DAILY)
  37. RAMIPRIL [Concomitant]
     Active Substance: RAMIPRIL
     Dosage: 10 MILLIGRAM, QD (DAILY)
  38. RAMIPRIL [Concomitant]
     Active Substance: RAMIPRIL
     Dosage: 10 MILLIGRAM, QD (DAILY)
     Route: 065
  39. RAMIPRIL [Concomitant]
     Active Substance: RAMIPRIL
     Dosage: 10 MILLIGRAM, QD (DAILY)
     Route: 065
  40. RAMIPRIL [Concomitant]
     Active Substance: RAMIPRIL
     Dosage: 10 MILLIGRAM, QD (DAILY)

REACTIONS (2)
  - Cardiomyopathy [Not Recovered/Not Resolved]
  - Mental impairment [Unknown]

NARRATIVE: CASE EVENT DATE: 20160101
